FAERS Safety Report 6929322-7 (Version None)
Quarter: 2010Q3

REPORT INFORMATION
  Report Type: 
  Country: None (occurrence: None)
  Receive Date: 20100818
  Receipt Date: 20100805
  Transmission Date: 20110219
  Serious: Yes (Hospitalization, Other)
  Sender: FDA-Public Use
  Company Number: CA-ELI_LILLY_AND_COMPANY-CA201008002386

PATIENT
  Age: 73 Year
  Sex: Female

DRUGS (6)
  1. FORTEO [Suspect]
     Indication: OSTEOPOROSIS
     Dosage: 20 UG, DAILY (1/D)
     Dates: start: 20090425
  2. DILAUDID [Concomitant]
  3. COLACE [Concomitant]
  4. PANTOLOC /01263202/ [Concomitant]
  5. SENOKOT [Concomitant]
  6. VITAMIN D [Concomitant]

REACTIONS (5)
  - BLADDER CANCER [None]
  - BLOOD URINE PRESENT [None]
  - BONE DISORDER [None]
  - METASTASES TO BONE [None]
  - PAIN IN EXTREMITY [None]
